FAERS Safety Report 18525900 (Version 5)
Quarter: 2022Q3

REPORT INFORMATION
  Report Type: Spontaneous
  Country: MA (occurrence: MA)
  Receive Date: 20201120
  Receipt Date: 20220713
  Transmission Date: 20221027
  Serious: Yes (Life-Threatening, Hospitalization, Disabling, Other)
  Sender: FDA-Public Use
  Company Number: MA-GSKCCFEMEA-CASE-01085949_AE-36961

PATIENT

DRUGS (5)
  1. ZEJULA [Suspect]
     Active Substance: NIRAPARIB
     Indication: Ovarian cancer
     Dosage: 2 DF, QD (100MG)
     Route: 048
     Dates: start: 202001, end: 202007
  2. ZEJULA [Suspect]
     Active Substance: NIRAPARIB
     Dosage: 2 DF, QD
     Dates: end: 202008
  3. ACETAMINOPHEN [Concomitant]
     Active Substance: ACETAMINOPHEN
     Indication: Product used for unknown indication
     Dosage: UNK
  4. ATORVASTATIN CALCIUM [Concomitant]
     Active Substance: ATORVASTATIN CALCIUM
     Indication: Product used for unknown indication
     Dosage: UNK
  5. GYNERGENE CAFEINE [Concomitant]
     Indication: Product used for unknown indication
     Dosage: UNK

REACTIONS (17)
  - Rectal haemorrhage [Not Recovered/Not Resolved]
  - Gastric haemorrhage [Unknown]
  - Thrombocytopenia [Not Recovered/Not Resolved]
  - Epistaxis [Not Recovered/Not Resolved]
  - Hypertension [Not Recovered/Not Resolved]
  - Headache [Unknown]
  - Asthenia [Not Recovered/Not Resolved]
  - Neutropenia [Unknown]
  - Adverse drug reaction [Unknown]
  - Haemorrhage [Unknown]
  - Abdominal pain upper [Not Recovered/Not Resolved]
  - Nausea [Unknown]
  - Decreased appetite [Unknown]
  - Dysphagia [Unknown]
  - Condition aggravated [Unknown]
  - Drug intolerance [Unknown]
  - Product availability issue [Unknown]

NARRATIVE: CASE EVENT DATE: 20200701
